FAERS Safety Report 4325851-3 (Version None)
Quarter: 2004Q1

REPORT INFORMATION
  Report Type: 
  Country: None (occurrence: None)
  Receive Date: 20040324
  Receipt Date: 20040312
  Transmission Date: 20041129
  Serious: Yes (Other)
  Sender: FDA-Public Use
  Company Number: US-JNJFOC-20040303215

PATIENT
  Age: 40 Year
  Sex: Female

DRUGS (15)
  1. INFLIXIMAB (INFLIXIMAB, RECOMBINANT) LYOPHILIZED POWDER [Suspect]
     Dosage: 600 MG, 1 IN 6 WEEK, INTRAVENOUS
     Route: 042
     Dates: start: 20011116
  2. INFLIXIMAB (INFLIXIMAB, RECOMBINANT) LYOPHILIZED POWDER [Suspect]
     Dosage: 600 MG, 1 IN 6 WEEK, INTRAVENOUS
     Route: 042
     Dates: start: 20030115
  3. ENBREL [Concomitant]
  4. PREDNISONE [Concomitant]
  5. METHOTREXATE [Concomitant]
  6. VIOXX [Concomitant]
  7. ASPIRIN [Concomitant]
  8. PREMARIN [Concomitant]
  9. ACIPHEX [Concomitant]
  10. TRAZODONE HCL [Concomitant]
  11. FOLIC ACID [Concomitant]
  12. ALLEGRA [Concomitant]
  13. XANAX [Concomitant]
  14. CALCIUM PLUS D (CALCIUM) [Concomitant]
  15. MULTIVITAMIN [Concomitant]

REACTIONS (5)
  - ANTINUCLEAR ANTIBODY POSITIVE [None]
  - ARTHRITIS [None]
  - CARDIOLIPIN ANTIBODY POSITIVE [None]
  - PHOTOSENSITIVITY REACTION [None]
  - SYSTEMIC LUPUS ERYTHEMATOSUS [None]
